FAERS Safety Report 7295157-1 (Version None)
Quarter: 2011Q1

REPORT INFORMATION
  Report Type: 
  Country: None (occurrence: None)
  Receive Date: 20110216
  Receipt Date: 20110207
  Transmission Date: 20110831
  Serious: Yes (Other)
  Sender: FDA-Public Use
  Company Number: US-AMGEN-USASP2011004148

PATIENT
  Age: 18 Year
  Sex: Female

DRUGS (1)
  1. ENBREL [Suspect]
     Indication: ANKYLOSING SPONDYLITIS
     Dosage: 50 MG, QWK
     Dates: start: 20110121

REACTIONS (12)
  - VISUAL IMPAIRMENT [None]
  - FALL [None]
  - HYPERHIDROSIS [None]
  - TINNITUS [None]
  - NAUSEA [None]
  - VOMITING [None]
  - SYNCOPE [None]
  - ANAPHYLACTIC REACTION [None]
  - PALLOR [None]
  - HEADACHE [None]
  - INJECTION SITE REACTION [None]
  - THROAT TIGHTNESS [None]
